FAERS Safety Report 9803120 (Version 1)
Quarter: 2014Q1

REPORT INFORMATION
  Report Type: Spontaneous
  Country: US (occurrence: None)
  Receive Date: 20140102
  Receipt Date: 20140102
  Transmission Date: 20141002
  Serious: Yes (Hospitalization)
  Sender: FDA-Public Use
  Company Number: SYM-2013-14348

PATIENT
  Age: 61 Year
  Sex: Female

DRUGS (10)
  1. WELLBUTRIN SR [Suspect]
     Indication: DEPRESSION
     Dosage: 2 IN 1 D
     Route: 048
     Dates: start: 2007
  2. ADVAIR DISKUS [Suspect]
     Indication: CHRONIC OBSTRUCTIVE PULMONARY DISEASE
     Dosage: 1 PUFF 2 IN 1 D
     Route: 055
     Dates: start: 2007
  3. PANTOPRAZOLE (PANTOPRAZOLE)(PANTOPRAZOLE) [Concomitant]
  4. ASPIRIN (ACETYLSALICYLIC ACID)(ACETYLSALICYLIC ACID) [Concomitant]
  5. CLOPIDOGREL BISULPHATE (CLOPIDOGREL BISULFATE)(CLOPIDOGREL BISULFATE) [Concomitant]
  6. DILTIAZEM HYDROCHLORIDE (DILTIAZEM HYDROCHLORIDE) (DILTIAZEM HYDROCHLORIDE) [Concomitant]
  7. FAMOTIDINE (FAMOTIDINE) (FAMOTIDINE) [Concomitant]
  8. METFORMIN HYDROCHLORIDE (METFORMIN HYDROCHLORIDE)(METFORMIN HYDROCHLORIDE) [Concomitant]
  9. PAROXETINE HYDROCHLORIDE (PAROXETINE HYDROCHLORIDE) (PAROXETINE HYDROCHLORIDE) [Concomitant]
  10. PRAVASTATIN (PRAVASTATIN) (PRAVASTATIN) [Concomitant]

REACTIONS (6)
  - Rectal haemorrhage [None]
  - Anaemia [None]
  - Gastritis erosive [None]
  - Blood count abnormal [None]
  - Haemorrhoids [None]
  - Fatigue [None]
